FAERS Safety Report 5466833-8 (Version None)
Quarter: 2007Q3

REPORT INFORMATION
  Report Type: 
  Country: None (occurrence: None)
  Receive Date: 20070920
  Receipt Date: 20070905
  Transmission Date: 20080115
  Serious: Yes (Other)
  Sender: FDA-Public Use
  Company Number: 2007SP017780

PATIENT
  Age: 63 Year
  Sex: Male

DRUGS (4)
  1. CLARITIN [Suspect]
     Indication: EOSINOPHILIA
     Dosage: 10 MG; QD; PO
     Route: 048
     Dates: start: 20070726, end: 20070806
  2. ARAVA [Suspect]
     Indication: DRUG USE FOR UNKNOWN INDICATION
     Dosage: 20 MG; QD;
     Dates: start: 20070726, end: 20070807
  3. FINASTID [Concomitant]
  4. LASIX [Concomitant]

REACTIONS (2)
  - BLISTER [None]
  - DERMATITIS EXFOLIATIVE [None]
